FAERS Safety Report 4663731-4 (Version None)
Quarter: 2005Q2

REPORT INFORMATION
  Report Type: 
  Country: None (occurrence: None)
  Receive Date: 20050516
  Receipt Date: 20050505
  Transmission Date: 20051028
  Serious: Yes (Death, Hospitalization, Other)
  Sender: FDA-Public Use
  Company Number: USA-2004-0014093

PATIENT
  Age: 47 Year
  Sex: Male
  Weight: 95.2 kg

DRUGS (22)
  1. OXYCONTIN [Suspect]
     Indication: PAIN
     Dosage: SEE IMAGE
     Route: 048
  2. HYDROCODONE BITARTRATE (HYDROCODONE BITARTRATE) [Suspect]
  3. DIHYDROCODEINE/CAFFEINE/ACETAMINOPHEN (PARACETAMOL, CAFFEINE, DIHYDROC [Suspect]
  4. METHADONE HCL [Suspect]
  5. VALIUM [Suspect]
  6. NICOTINE [Suspect]
  7. DOXEPIN HCL [Suspect]
  8. ELAVIL [Concomitant]
  9. TOPAMAX [Concomitant]
  10. SONATA [Concomitant]
  11. PREDNISONE [Concomitant]
  12. LORTAB [Concomitant]
  13. LORCET-HD [Concomitant]
  14. AMERGE [Concomitant]
  15. PROPRANOLOL [Concomitant]
  16. DEPAKOTE [Concomitant]
  17. IMITREX [Concomitant]
  18. ULTRAM [Concomitant]
  19. XANAX [Concomitant]
  20. FLEXERIL [Concomitant]
  21. VIAGRA [Concomitant]
  22. FIORINAL WITH CODEINE (PHENACETIN, BUTALBITAL) [Concomitant]

REACTIONS (35)
  - ANOREXIA [None]
  - ANXIETY [None]
  - ASTHENIA [None]
  - CONDITION AGGRAVATED [None]
  - CONFUSIONAL STATE [None]
  - CONVULSION [None]
  - DEAFNESS [None]
  - DRUG DEPENDENCE [None]
  - DRUG SCREEN POSITIVE [None]
  - EAR PAIN [None]
  - EYE PAIN [None]
  - FATIGUE [None]
  - HALLUCINATION [None]
  - HEADACHE [None]
  - INADEQUATE ANALGESIA [None]
  - INSOMNIA [None]
  - LOSS OF CONSCIOUSNESS [None]
  - MALAISE [None]
  - MENTAL STATUS CHANGES [None]
  - MULTIPLE DRUG OVERDOSE ACCIDENTAL [None]
  - NAUSEA [None]
  - NECK PAIN [None]
  - PAIN [None]
  - PARAESTHESIA [None]
  - PETECHIAE [None]
  - PHOTOPHOBIA [None]
  - POLYSUBSTANCE ABUSE [None]
  - PYREXIA [None]
  - SALIVARY HYPERSECRETION [None]
  - SHOULDER PAIN [None]
  - SLEEP DISORDER [None]
  - SPEECH DISORDER [None]
  - SUICIDAL IDEATION [None]
  - TINNITUS [None]
  - VOMITING [None]
